FAERS Safety Report 9513505 (Version 1)
Quarter: 2013Q3

REPORT INFORMATION
  Report Type: Spontaneous
  Country: US (occurrence: US)
  Receive Date: 20130910
  Receipt Date: 20130910
  Transmission Date: 20140515
  Serious: No
  Sender: FDA-Public Use
  Company Number: US-TARO-2013P1007950

PATIENT
  Age: 76 Year
  Sex: Male
  Weight: 90.72 kg

DRUGS (6)
  1. WARFARIN SODIUM TABLETS USP 5MG [Suspect]
     Indication: ATRIAL FIBRILLATION
     Route: 048
     Dates: start: 201209
  2. STINGING NETTLE [Concomitant]
  3. DEVIL^S CLAW [Concomitant]
  4. ZETIA [Concomitant]
  5. LIPITOR [Concomitant]
  6. MULTIVITAMINS [Concomitant]

REACTIONS (1)
  - Alopecia [Not Recovered/Not Resolved]
